FAERS Safety Report 9536120 (Version 1)
Quarter: 2013Q2

REPORT INFORMATION
  Report Type: Spontaneous
  Country: US (occurrence: None)
  Receive Date: 20130507
  Receipt Date: 20130507
  Transmission Date: 20140414
  Serious: No
  Sender: FDA-Public Use
  Company Number: PHEH2013US000916

PATIENT
  Age: 53 Year
  Sex: Female
  Weight: 65.8 kg

DRUGS (4)
  1. AFINITOR (RAD) [Suspect]
     Indication: BREAST CANCER
     Route: 048
  2. AROMASIN (EXEMESTANE) [Concomitant]
  3. MULTIVITAMINS (ASCORBIC ACID, ERGOCALCIFEROL, FOLIC ACID, NICOTINAMIDE, PANTHENOL, RETINOL, RIBOFLAVIN, THIAMINE HYDROCHLORIDE) [Concomitant]
  4. CALCIUM D (CALCIUM CARBONATE, COLECALCIFEROL) [Concomitant]

REACTIONS (2)
  - Abdominal distension [None]
  - Drug ineffective [None]
